FAERS Safety Report 9773222 (Version 1)
Quarter: 2013Q4

REPORT INFORMATION
  Report Type: Spontaneous
  Country: US (occurrence: US)
  Receive Date: 20131219
  Receipt Date: 20131219
  Transmission Date: 20140711
  Serious: Yes (Death, Hospitalization)
  Sender: FDA-Public Use
  Company Number: US-GLAXOSMITHKLINE-A1053760A

PATIENT
  Age: 88 Year
  Sex: Female

DRUGS (2)
  1. VOTRIENT [Suspect]
     Indication: INFLAMMATORY MYOFIBROBLASTIC TUMOUR
     Route: 065
  2. NO CONCURRENT MEDICATION [Concomitant]

REACTIONS (3)
  - Death [Fatal]
  - Pulmonary embolism [Unknown]
  - Investigation [Unknown]
